FAERS Safety Report 6054499-8 (Version None)
Quarter: 2009Q1

REPORT INFORMATION
  Report Type: 
  Country: None (occurrence: None)
  Receive Date: 20090127
  Receipt Date: 20090114
  Transmission Date: 20090719
  Serious: Yes (Hospitalization)
  Sender: FDA-Public Use
  Company Number: PHHY2009FR01974

PATIENT
  Sex: Male

DRUGS (12)
  1. ESIDRIX [Suspect]
     Indication: CARDIAC FAILURE
     Dosage: 25 MG, UNK
     Route: 048
     Dates: start: 20081029, end: 20081105
  2. BACTRIM [Concomitant]
     Indication: ABSCESS
     Dosage: 400 MG, TID
     Route: 042
     Dates: start: 20081101, end: 20081105
  3. AUGMENTIN                               /SCH/ [Concomitant]
     Indication: ABSCESS
     Dosage: 1 G, TID
     Route: 042
     Dates: start: 20081101, end: 20081105
  4. ACUPAN [Concomitant]
     Dosage: UNK
     Dates: start: 20081101, end: 20081105
  5. SKENAN [Concomitant]
  6. MORPHINE [Concomitant]
  7. KERLONE [Concomitant]
  8. CRESTOR [Concomitant]
  9. ATARAX [Concomitant]
  10. KARDEGIC [Concomitant]
  11. DEPAKENE [Concomitant]
  12. LYRICA [Concomitant]

REACTIONS (7)
  - AGITATION [None]
  - HALLUCINATION [None]
  - HEADACHE [None]
  - HYPERKALIURIA [None]
  - HYPONATRAEMIA [None]
  - MALNUTRITION [None]
  - URINE SODIUM INCREASED [None]
